FAERS Safety Report 8511910-8 (Version None)
Quarter: 2012Q3

REPORT INFORMATION
  Report Type: 
  Country: None (occurrence: None)
  Receive Date: 20120716
  Receipt Date: 20120706
  Transmission Date: 20120928
  Serious: Yes (Disabling)
  Sender: FDA-Public Use
  Company Number: CA-PFIZER INC-2012168026

PATIENT
  Age: 65 Year
  Sex: Female
  Weight: 92 kg

DRUGS (7)
  1. CRESTOR [Concomitant]
  2. ZESTRIL [Concomitant]
  3. OMNARIS [Concomitant]
  4. AMITRIPTYLINE [Concomitant]
  5. EZETIMIBE [Concomitant]
  6. SYMBICORT [Concomitant]
  7. PANTOPRAZOLE [Suspect]
     Dosage: 40 MG, 1X/DAY

REACTIONS (2)
  - VISUAL ACUITY REDUCED [None]
  - ACCOMMODATION DISORDER [None]
